FAERS Safety Report 8525760-X (Version None)
Quarter: 2012Q3

REPORT INFORMATION
  Report Type: 
  Country: None (occurrence: None)
  Receive Date: 20120720
  Receipt Date: 20120711
  Transmission Date: 20120928
  Serious: Yes (Hospitalization, Other)
  Sender: FDA-Public Use
  Company Number: DE-MSD-1205DEU00059

PATIENT

DRUGS (2)
  1. METFORMIN HYDROCHLORIDE [Suspect]
     Indication: TYPE 2 DIABETES MELLITUS
     Dosage: 1000MG/50
     Route: 048
     Dates: start: 20110202
  2. AMILORIDE HCL AND HYDROCHLOROTHIAZIDE [Suspect]

REACTIONS (8)
  - HYPERTENSIVE NEPHROPATHY [None]
  - DIABETIC NEPHROPATHY [None]
  - HYPERTENSIVE CRISIS [None]
  - DYSPNOEA [None]
  - SOMNOLENCE [None]
  - HYPONATRAEMIA [None]
  - WEIGHT INCREASED [None]
  - PYREXIA [None]
